FAERS Safety Report 4350879-7 (Version None)
Quarter: 2004Q2

REPORT INFORMATION
  Report Type: 
  Country: None (occurrence: None)
  Receive Date: 20040427
  Receipt Date: 20040415
  Transmission Date: 20050107
  Serious: Yes (Disabling)
  Sender: FDA-Public Use
  Company Number: 04P-056-0257731-00

PATIENT
  Age: 1 Day
  Sex: Male
  Weight: 3500 kg

DRUGS (1)
  1. DEPAKENE [Suspect]

REACTIONS (4)
  - CYSTINURIA [None]
  - MATERNAL DRUGS AFFECTING FOETUS [None]
  - NEONATAL RESPIRATORY DISTRESS SYNDROME [None]
  - SPEECH DISORDER DEVELOPMENTAL [None]
